FAERS Safety Report 4957039-7 (Version None)
Quarter: 2006Q1

REPORT INFORMATION
  Report Type: 
  Country: None (occurrence: None)
  Receive Date: 20060323
  Receipt Date: 20060313
  Transmission Date: 20060701
  Serious: Yes (Hospitalization)
  Sender: FDA-Public Use
  Company Number: 13570

PATIENT
  Age: 81 Year
  Sex: Male
  Weight: 72.6 kg

DRUGS (16)
  1. CYTARABINE [Suspect]
     Indication: ACUTE MYELOID LEUKAEMIA
     Dates: start: 20060101
  2. ETOPOSIDE [Suspect]
     Indication: ACUTE MYELOID LEUKAEMIA
     Dates: start: 20060101
  3. MITOXANTRONE [Suspect]
     Indication: ACUTE MYELOID LEUKAEMIA
     Dates: start: 20060101
  4. CEP-701 [Suspect]
     Indication: ACUTE MYELOID LEUKAEMIA
     Dosage: 80 MG BID PO
     Route: 048
     Dates: start: 20060123, end: 20060125
  5. CEP-701 [Suspect]
     Indication: ACUTE MYELOID LEUKAEMIA
     Dosage: 80 MG BID PO
     Route: 048
     Dates: start: 20060126, end: 20060131
  6. CEP-701 [Suspect]
     Indication: ACUTE MYELOID LEUKAEMIA
     Dosage: 60 MG BID PO
     Route: 048
     Dates: start: 20060201, end: 20060206
  7. CEP-701 [Suspect]
     Indication: ACUTE MYELOID LEUKAEMIA
     Dosage: 60 MG BID PO
     Route: 048
     Dates: start: 20060217
  8. ACYCLOVIR [Concomitant]
  9. PRED FORTE [Concomitant]
  10. ALLOPURINOL [Concomitant]
  11. BIOTENE [Concomitant]
  12. ATIVAN [Concomitant]
  13. LEXAPRO [Concomitant]
  14. AMBIEN [Concomitant]
  15. MULTIVITAMIN [Concomitant]
  16. PROTONIX /01263201/ [Concomitant]

REACTIONS (9)
  - ANOREXIA [None]
  - BLOOD ALKALINE PHOSPHATASE INCREASED [None]
  - BLOOD CULTURE POSITIVE [None]
  - DYSPHAGIA [None]
  - FATIGUE [None]
  - INFECTION [None]
  - MUCOSAL INFLAMMATION [None]
  - PANCYTOPENIA [None]
  - STOMATITIS [None]
